FAERS Safety Report 8112479-2 (Version None)
Quarter: 2012Q1

REPORT INFORMATION
  Report Type: 
  Country: None (occurrence: None)
  Receive Date: 20120203
  Receipt Date: 20120131
  Transmission Date: 20120608
  Serious: Yes (Other)
  Sender: FDA-Public Use
  Company Number: US-ROCHE-1001662

PATIENT
  Sex: Female
  Weight: 68.554 kg

DRUGS (2)
  1. ACCUTANE [Suspect]
     Indication: ACNE
     Route: 048
     Dates: start: 19960117, end: 19960701
  2. ACCUTANE [Suspect]
     Dates: start: 19970101, end: 19980101

REACTIONS (9)
  - DEPRESSION [None]
  - BLOOD TRIGLYCERIDES INCREASED [None]
  - LIP DRY [None]
  - ANXIETY [None]
  - INFLAMMATORY BOWEL DISEASE [None]
  - BLOOD CHOLESTEROL INCREASED [None]
  - IRRITABLE BOWEL SYNDROME [None]
  - EMOTIONAL DISTRESS [None]
  - COLITIS ULCERATIVE [None]
